FAERS Safety Report 12100226 (Version 4)
Quarter: 2016Q2

REPORT INFORMATION
  Report Type: Report from Study
  Country: AR (occurrence: AR)
  Receive Date: 20160222
  Receipt Date: 20160621
  Transmission Date: 20160815
  Serious: Yes (Hospitalization, Other)
  Sender: FDA-Public Use
  Company Number: AR-ABBVIE-16K-007-1560119-00

PATIENT
  Age: 68 Year
  Sex: Female

DRUGS (3)
  1. HUMIRA [Suspect]
     Active Substance: ADALIMUMAB
     Indication: RHEUMATOID ARTHRITIS
     Route: 058
     Dates: start: 20110106, end: 20160205
  2. ARTRAIT [Suspect]
     Active Substance: METHOTREXATE SODIUM
     Indication: PRODUCT USED FOR UNKNOWN INDICATION
     Route: 065
  3. ARTRAIT [Suspect]
     Active Substance: METHOTREXATE SODIUM
     Route: 065

REACTIONS (10)
  - Parkinson^s disease [Unknown]
  - Dizziness [Unknown]
  - Hepatic cirrhosis [Not Recovered/Not Resolved]
  - Diabetes mellitus [Unknown]
  - Dementia Alzheimer^s type [Unknown]
  - Wrong drug administered [Unknown]
  - Muscle spasms [Not Recovered/Not Resolved]
  - Urinary tract infection [Unknown]
  - Arthritis infective [Unknown]
  - Malaise [Unknown]

NARRATIVE: CASE EVENT DATE: 20160201
